FAERS Safety Report 14128491 (Version 1)
Quarter: 2017Q4

REPORT INFORMATION
  Report Type: Spontaneous
  Country: US (occurrence: US)
  Receive Date: 20171026
  Receipt Date: 20171026
  Transmission Date: 20180321
  Serious: Yes (Death)
  Sender: FDA-Public Use
  Company Number: None

PATIENT
  Age: 81 Year
  Sex: Female
  Weight: 76.5 kg

DRUGS (3)
  1. METHOTREXATE PO [Suspect]
     Active Substance: METHOTREXATE
     Indication: TEMPORAL ARTERITIS
     Dosage: STRENGTH TITRATED MG ?          QUANTITY:8 TABLET(S);OTHER FREQUENCY:EVERY SUNDAY;ORAL?
     Route: 048
     Dates: start: 20130831, end: 20170102
  2. PROBIOTIC [Concomitant]
     Active Substance: PROBIOTICS NOS
  3. VITAMIN [Concomitant]
     Active Substance: VITAMINS

REACTIONS (6)
  - Leiomyosarcoma [None]
  - General physical health deterioration [None]
  - Back pain [None]
  - Soft tissue sarcoma [None]
  - Abdominal pain upper [None]
  - Constipation [None]

NARRATIVE: CASE EVENT DATE: 20140102
